FAERS Safety Report 6856919-5 (Version None)
Quarter: 2010Q3

REPORT INFORMATION
  Report Type: 
  Country: None (occurrence: None)
  Receive Date: 20100719
  Receipt Date: 20100707
  Transmission Date: 20110219
  Serious: Yes (Hospitalization)
  Sender: FDA-Public Use
  Company Number: US-CELGENEUS-163-20785-10051862

PATIENT
  Sex: Male

DRUGS (10)
  1. THALOMID [Suspect]
     Indication: MULTIPLE MYELOMA
     Route: 048
     Dates: start: 20100129
  2. PREDNISONE [Concomitant]
     Indication: MULTIPLE MYELOMA
     Route: 048
  3. ASPIRIN [Concomitant]
     Indication: PRODUCT USED FOR UNKNOWN INDICATION
     Route: 048
  4. CALTRATE D [Concomitant]
     Dosage: 600-400MG
     Route: 048
  5. FERROUS SULFATE [Concomitant]
     Route: 048
  6. KLOR-CON M20 [Concomitant]
     Route: 048
  7. LASIX [Concomitant]
     Route: 048
  8. VITAMIN C [Concomitant]
     Indication: PRODUCT USED FOR UNKNOWN INDICATION
     Route: 048
  9. AVELOX [Concomitant]
     Indication: LUNG INFECTION
     Route: 048
  10. AVELOX [Concomitant]
     Route: 051

REACTIONS (2)
  - CHRONIC OBSTRUCTIVE PULMONARY DISEASE [None]
  - PNEUMONIA [None]
